FAERS Safety Report 8449513-6 (Version None)
Quarter: 2012Q2

REPORT INFORMATION
  Report Type: 
  Country: None (occurrence: None)
  Receive Date: 20120619
  Receipt Date: 20120402
  Transmission Date: 20120825
  Serious: Yes (Other)
  Sender: FDA-Public Use
  Company Number: ES-BAYER-2012-052298

PATIENT
  Age: 75 Year
  Sex: Female

DRUGS (14)
  1. TROPICAMIDE [Concomitant]
  2. PAIN RELIEVER PM [Concomitant]
  3. MOXIFLOXACIN [Suspect]
     Dosage: UNK
     Route: 031
     Dates: start: 20120228, end: 20120228
  4. ACTOCORTINA [Concomitant]
     Dosage: UNK
     Route: 031
     Dates: start: 20120228, end: 20120228
  5. OFTALAR [Concomitant]
     Dosage: 1 GTT, TID
     Dates: start: 20120225, end: 20120228
  6. ZOLPIDEM [Concomitant]
  7. TOBRADEX [Concomitant]
     Dosage: UNK
     Route: 047
     Dates: start: 20120228, end: 20120228
  8. OMEPRAZOLE [Concomitant]
  9. OFTALAR [Concomitant]
  10. MYDRIACYL [Concomitant]
     Dosage: UNK
     Route: 047
     Dates: start: 20120228, end: 20120228
  11. TOBRADEX [Concomitant]
  12. OFTALAR [Concomitant]
  13. TOBRADEX [Concomitant]
  14. ATENOLOL [Concomitant]

REACTIONS (5)
  - TOXIC ANTERIOR SEGMENT SYNDROME [None]
  - CORNEAL OEDEMA [None]
  - HYPOPYON [None]
  - VITRITIS [None]
  - ANTERIOR CHAMBER FIBRIN [None]
